FAERS Safety Report 20470135 (Version 1)
Quarter: 2022Q1

REPORT INFORMATION
  Report Type: Spontaneous
  Country: DE (occurrence: DE)
  Receive Date: 20220214
  Receipt Date: 20220214
  Transmission Date: 20220424
  Serious: Yes (Other)
  Sender: FDA-Public Use
  Company Number: DE-PFIZER INC-2021534148

PATIENT
  Age: 7 Decade
  Sex: Male

DRUGS (3)
  1. DILTIAZEM [Suspect]
     Active Substance: DILTIAZEM
     Indication: Blood pressure abnormal
     Dosage: 60 MG
     Dates: start: 202101, end: 202104
  2. DILTIAZEM [Suspect]
     Active Substance: DILTIAZEM
     Dosage: 90 MG, 2X/DAY
     Dates: start: 202104
  3. RASILEZ [Concomitant]
     Active Substance: ALISKIREN
     Dosage: 300 MG

REACTIONS (4)
  - Respiratory distress [Unknown]
  - Bronchospasm [Unknown]
  - Muscle spasms [Unknown]
  - Myalgia [Unknown]
